FAERS Safety Report 9070912 (Version 1)
Quarter: 2013Q1

REPORT INFORMATION
  Report Type: Report from Study
  Country: US (occurrence: US)
  Receive Date: 20130129
  Receipt Date: 20130129
  Transmission Date: 20140127
  Serious: Yes (Hospitalization)
  Sender: FDA-Public Use
  Company Number: US-GLAXOSMITHKLINE-A1008870A

PATIENT
  Age: 60 Year
  Sex: Male
  Weight: 73.3 kg

DRUGS (11)
  1. MELPHALAN [Suspect]
     Indication: PLASMA CELL MYELOMA
     Dosage: 310MG SINGLE DOSE
     Route: 042
     Dates: start: 20121003, end: 20121003
  2. VELCADE [Suspect]
     Indication: PLASMA CELL MYELOMA
     Dosage: 2.3MG CYCLIC
     Route: 042
     Dates: start: 20120607, end: 20120729
  3. DEXAMETHASONE [Suspect]
     Indication: PLASMA CELL MYELOMA
     Dates: start: 20120607, end: 20120801
  4. LENALIDOMIDE [Suspect]
     Indication: PLASMA CELL MYELOMA
     Route: 048
     Dates: start: 20120607, end: 20120801
  5. GCSF [Concomitant]
     Dates: start: 20121010, end: 20121017
  6. PRAVASTATIN [Concomitant]
  7. METFORMIN [Concomitant]
  8. FLUCONAZOLE [Concomitant]
  9. ACYCLOVIR [Concomitant]
  10. GABAPENTIN [Concomitant]
  11. NORTRIPTYLINE [Concomitant]

REACTIONS (4)
  - Tachycardia [Recovered/Resolved]
  - Pyrexia [Recovered/Resolved]
  - Diarrhoea [Recovered/Resolved]
  - Nausea [Recovered/Resolved]
